FAERS Safety Report 9308273 (Version 2)
Quarter: 2013Q2

REPORT INFORMATION
  Report Type: Spontaneous
  Country: FI (occurrence: FI)
  Receive Date: 20130524
  Receipt Date: 20130605
  Transmission Date: 20140414
  Serious: Yes (Other)
  Sender: FDA-Public Use
  Company Number: PHHY2013FI051487

PATIENT
  Sex: Female

DRUGS (2)
  1. VOLTAREN RAPID [Suspect]
     Dosage: 50 MG
     Dates: start: 20130514
  2. SIRDALUD [Suspect]
     Indication: MUSCLE SPASMS
     Dosage: 4 MG TID
     Dates: start: 20130514, end: 201305

REACTIONS (9)
  - Hemiplegia [Unknown]
  - Loss of consciousness [Unknown]
  - Hallucination, visual [Recovered/Resolved]
  - Hallucination, auditory [Recovered/Resolved]
  - Daydreaming [Unknown]
  - Crying [Unknown]
  - Influenza [Unknown]
  - Immune system disorder [Unknown]
  - Somnolence [Recovered/Resolved]
